FAERS Safety Report 7233055-X (Version None)
Quarter: 2011Q1

REPORT INFORMATION
  Report Type: 
  Country: None (occurrence: None)
  Receive Date: 20110119
  Receipt Date: 20110107
  Transmission Date: 20110831
  Serious: Yes (Other)
  Sender: FDA-Public Use
  Company Number: CA-PURDUE-CAN-2011-0001687

PATIENT
  Sex: Male

DRUGS (3)
  1. OXYCONTIN [Suspect]
     Indication: HERPES ZOSTER OTICUS
     Dosage: 8 TABLET, DAILY
  2. OXYCONTIN [Suspect]
     Indication: POST HERPETIC NEURALGIA
     Dosage: 4 TABLET, DAILY
     Route: 048
  3. OXYCONTIN [Suspect]
     Indication: HERPES ZOSTER

REACTIONS (3)
  - SUICIDAL IDEATION [None]
  - DRUG WITHDRAWAL SYNDROME [None]
  - INADEQUATE ANALGESIA [None]
